FAERS Safety Report 13973604 (Version 1)
Quarter: 2017Q3

REPORT INFORMATION
  Report Type: Spontaneous
  Country: ES (occurrence: ES)
  Receive Date: 20170915
  Receipt Date: 20170915
  Transmission Date: 20171128
  Serious: Yes (Hospitalization, Other)
  Sender: FDA-Public Use
  Company Number: ES-BAYER-2017-174002

PATIENT
  Age: 67 Year
  Sex: Male

DRUGS (2)
  1. ACETYLSALICYLIC ACID({=100 MG) [Suspect]
     Active Substance: ASPIRIN
     Dosage: UNK
  2. TICAGRELOR. [Interacting]
     Active Substance: TICAGRELOR
     Dosage: UNK

REACTIONS (5)
  - Lower gastrointestinal haemorrhage [Recovering/Resolving]
  - Haematoma [Recovering/Resolving]
  - Pneumonia [Recovering/Resolving]
  - Drug administration error [Recovering/Resolving]
  - Labelled drug-drug interaction medication error [Recovering/Resolving]
